FAERS Safety Report 16851716 (Version 1)
Quarter: 2019Q3

REPORT INFORMATION
  Report Type: Report from Study
  Country: US (occurrence: US)
  Receive Date: 20190925
  Receipt Date: 20190925
  Transmission Date: 20191005
  Serious: Yes (Hospitalization)
  Sender: FDA-Public Use
  Company Number: US-PFIZER INC-2019348522

PATIENT
  Age: 62 Year
  Sex: Female

DRUGS (1)
  1. IBRANCE [Suspect]
     Active Substance: PALBOCICLIB
     Indication: BREAST CANCER FEMALE
     Dosage: 125 MG, CYCLIC (21 DAYS ON, 7 DAYS OFF)
     Route: 048
     Dates: start: 20190802, end: 20190824

REACTIONS (16)
  - Bone marrow failure [Unknown]
  - Urinary tract infection [Unknown]
  - Tachycardia [Unknown]
  - Thrombocytopenia [Unknown]
  - Neoplasm progression [Unknown]
  - Leukopenia [Unknown]
  - Pulmonary embolism [Unknown]
  - Respiratory distress [Unknown]
  - Fatigue [Unknown]
  - Hypokalaemia [Unknown]
  - Disorientation [Unknown]
  - Diarrhoea [Unknown]
  - Anaemia [Unknown]
  - Deep vein thrombosis [Unknown]
  - Pleural effusion [Unknown]
  - Muscular weakness [Unknown]

NARRATIVE: CASE EVENT DATE: 20190819
